FAERS Safety Report 7609165-1 (Version None)
Quarter: 2011Q3

REPORT INFORMATION
  Report Type: 
  Country: None (occurrence: None)
  Receive Date: 20110714
  Receipt Date: 20110705
  Transmission Date: 20111222
  Serious: Yes (Life-Threatening, Other)
  Sender: FDA-Public Use
  Company Number: US-JNJFOC-20110701392

PATIENT
  Sex: Female
  Weight: 43.5 kg

DRUGS (5)
  1. METHYLPREDNISOLONE [Concomitant]
     Indication: PREMEDICATION
  2. REMICADE [Suspect]
     Indication: INFLAMMATORY BOWEL DISEASE
     Route: 042
     Dates: start: 20100501, end: 20110413
  3. PROBIOTICS [Concomitant]
  4. PREDNISONE [Concomitant]
  5. DIPHENHYDRAMINE HCL [Concomitant]
     Indication: PREMEDICATION

REACTIONS (1)
  - ANAPHYLACTIC REACTION [None]
